FAERS Safety Report 5391193-0 (Version None)
Quarter: 2007Q3

REPORT INFORMATION
  Report Type: 
  Country: None (occurrence: None)
  Receive Date: 20070719
  Receipt Date: 20070710
  Transmission Date: 20080115
  Serious: Yes (Hospitalization)
  Sender: FDA-Public Use
  Company Number: AU-AMGEN-US229982

PATIENT
  Sex: Female
  Weight: 67 kg

DRUGS (6)
  1. NEULASTA [Suspect]
     Indication: CHEMOTHERAPY
     Route: 058
     Dates: start: 20070529, end: 20070529
  2. FLUOROURACIL [Concomitant]
     Route: 065
     Dates: start: 20070504
  3. CYCLOPHOSPHAMIDE [Concomitant]
     Route: 065
     Dates: start: 20070504
  4. EPIRUBICIN [Concomitant]
     Route: 065
     Dates: start: 20070504
  5. ONDANSETRON [Concomitant]
     Route: 065
     Dates: start: 20070504
  6. DEXAMETHASONE 0.5MG TAB [Concomitant]
     Route: 065
     Dates: start: 20070504

REACTIONS (1)
  - ANAPHYLACTIC REACTION [None]
